FAERS Safety Report 17140069 (Version 3)
Quarter: 2021Q4

REPORT INFORMATION
  Report Type: Spontaneous
  Country: CA (occurrence: CA)
  Receive Date: 20191211
  Receipt Date: 20211030
  Transmission Date: 20220303
  Serious: Yes (Life-Threatening, Hospitalization, Other)
  Sender: FDA-Public Use
  Company Number: CA-AUROBINDO-AUR-APL-2015-10370

PATIENT
  Age: 62 Year
  Sex: Male

DRUGS (21)
  1. QUETIAPINE [Interacting]
     Active Substance: QUETIAPINE
     Indication: Delirium
     Dosage: 50 MILLIGRAM, FOUR TIMES/DAY
     Route: 065
  2. QUETIAPINE [Interacting]
     Active Substance: QUETIAPINE
     Indication: Agitation
     Dosage: 200 MILLIGRAM, FOUR TIMES/DAY
     Route: 065
  3. HALOPERIDOL [Interacting]
     Active Substance: HALOPERIDOL
     Indication: Agitation
     Dosage: 1 MILLIGRAM, ONCE A DAY
     Route: 065
  4. HALOPERIDOL [Interacting]
     Active Substance: HALOPERIDOL
     Indication: Aggression
     Dosage: 3 MILLIGRAM
     Route: 065
  5. HALOPERIDOL [Interacting]
     Active Substance: HALOPERIDOL
     Dosage: 4 MILLIGRAM
     Route: 065
  6. METOCLOPRAMIDE [Interacting]
     Active Substance: METOCLOPRAMIDE
     Indication: Malabsorption
     Dosage: 50 MILLIGRAM, FOUR TIMES/DAY
     Route: 065
  7. METOCLOPRAMIDE [Interacting]
     Active Substance: METOCLOPRAMIDE
     Indication: Gastric disorder
     Dosage: 200 MILLIGRAM, FOUR TIMES/DAY
     Route: 065
  8. METOCLOPRAMIDE [Interacting]
     Active Substance: METOCLOPRAMIDE
     Indication: Agitation
  9. METOCLOPRAMIDE [Interacting]
     Active Substance: METOCLOPRAMIDE
     Indication: Malabsorption
  10. LORAZEPAM [Suspect]
     Active Substance: LORAZEPAM
     Indication: Clonus
     Dosage: 5.0 MILLIGRAM
     Route: 065
  11. MIDAZOLAM [Suspect]
     Active Substance: MIDAZOLAM
     Indication: Clonus
     Dosage: 6.5 MILLIGRAM
     Route: 065
  12. MIDAZOLAM [Suspect]
     Active Substance: MIDAZOLAM
     Dosage: 8.0 MILLIGRAM
     Route: 065
  13. MIDAZOLAM [Concomitant]
     Active Substance: MIDAZOLAM
     Indication: Clonus
     Dosage: 6.5 MILLIGRAM
     Route: 065
  14. MIDAZOLAM [Concomitant]
     Active Substance: MIDAZOLAM
     Indication: Status epilepticus
  15. LORAZEPAM [Suspect]
     Active Substance: LORAZEPAM
     Indication: Status epilepticus
     Dosage: 4 MILLIGRAM
     Route: 065
  16. PROPOFOL [Concomitant]
     Active Substance: PROPOFOL
     Indication: Depressed level of consciousness
     Dosage: UNK
     Route: 065
  17. PROPOFOL [Concomitant]
     Active Substance: PROPOFOL
     Indication: Anaesthesia
  18. PHENYTOIN [Concomitant]
     Active Substance: PHENYTOIN
     Indication: Depressed level of consciousness
     Dosage: UNK
     Route: 065
  19. PRAMIPEXOLE [Concomitant]
     Active Substance: PRAMIPEXOLE
     Indication: Restless legs syndrome
     Dosage: 0.5 MILLIGRAM, ONCE A DAY
     Route: 065
  20. PRAMIPEXOLE [Concomitant]
     Active Substance: PRAMIPEXOLE
     Indication: Cerebral artery occlusion
  21. ALTEPLASE [Concomitant]
     Active Substance: ALTEPLASE
     Indication: Product used for unknown indication
     Dosage: UNK
     Route: 065

REACTIONS (7)
  - Dystonia [Recovered/Resolved]
  - Depressed level of consciousness [Unknown]
  - Endotracheal intubation [Unknown]
  - Drug ineffective [Unknown]
  - Potentiating drug interaction [Recovering/Resolving]
  - Status epilepticus [Recovering/Resolving]
  - Drug interaction [Recovered/Resolved]
